FAERS Safety Report 11219183 (Version 1)
Quarter: 2015Q2

REPORT INFORMATION
  Report Type: Spontaneous
  Country: US (occurrence: US)
  Receive Date: 20150625
  Receipt Date: 20150625
  Transmission Date: 20150821
  Serious: No
  Sender: FDA-Public Use
  Company Number: US-PFIZER INC-2015210500

PATIENT
  Age: 43 Year
  Sex: Male
  Weight: 68 kg

DRUGS (1)
  1. CHANTIX [Suspect]
     Active Substance: VARENICLINE TARTRATE
     Indication: SMOKING CESSATION THERAPY
     Dosage: 0.5 MG, 1X/DAY
     Route: 048
     Dates: start: 201506

REACTIONS (4)
  - Irritability [Unknown]
  - Hostility [Unknown]
  - Mood altered [Unknown]
  - Tobacco user [Unknown]

NARRATIVE: CASE EVENT DATE: 201506
